FAERS Safety Report 9464263 (Version 1)
Quarter: 2013Q3

REPORT INFORMATION
  Report Type: Report from Study
  Country: NZ (occurrence: NZ)
  Receive Date: 20130819
  Receipt Date: 20130819
  Transmission Date: 20140515
  Serious: Yes (Hospitalization)
  Sender: FDA-Public Use
  Company Number: NZ-PFIZER INC-2013235454

PATIENT
  Age: 29 Year
  Sex: Female

DRUGS (2)
  1. CHAMPIX [Suspect]
     Indication: SMOKING CESSATION THERAPY
     Dosage: 0.5 MG, PER DAY (STARTER PACK)
  2. CHAMPIX [Suspect]
     Dosage: 2 MG, PER DAY (STARTER PACK)

REACTIONS (2)
  - Kidney infection [Unknown]
  - False labour [Unknown]
